FAERS Safety Report 4987828-4 (Version None)
Quarter: 2006Q2

REPORT INFORMATION
  Report Type: 
  Country: None (occurrence: None)
  Receive Date: 20060427
  Receipt Date: 20060427
  Transmission Date: 20061013
  Serious: Yes (Hospitalization)
  Sender: FDA-Public Use
  Company Number: None

PATIENT
  Age: 54 Year
  Sex: Male

DRUGS (2)
  1. TORADOL [Suspect]
     Indication: PAIN
     Dosage: 30 MG    ONE TIME    IV
     Route: 042
     Dates: start: 20051224, end: 20051224
  2. DILAUDID [Suspect]
     Indication: PAIN
     Dosage: 1MG   ONE TIME   IV
     Route: 042
     Dates: start: 20051224, end: 20051224

REACTIONS (1)
  - RENAL FAILURE ACUTE [None]
